FAERS Safety Report 9603196 (Version 1)
Quarter: 2013Q4

REPORT INFORMATION
  Report Type: Report from Study
  Country: DE (occurrence: DE)
  Receive Date: 20131007
  Receipt Date: 20131007
  Transmission Date: 20140711
  Serious: Yes (Hospitalization)
  Sender: FDA-Public Use
  Company Number: DE-ABBVIE-13P-062-1153630-00

PATIENT
  Age: 81 Year
  Sex: Female

DRUGS (1)
  1. HUMIRA [Suspect]
     Indication: PSORIATIC ARTHROPATHY
     Route: 058
     Dates: start: 20070201

REACTIONS (4)
  - Skin graft rejection [Recovering/Resolving]
  - Impaired healing [Recovering/Resolving]
  - Skin cancer [Recovering/Resolving]
  - Psoriatic arthropathy [Not Recovered/Not Resolved]
